FAERS Safety Report 5354750-3 (Version None)
Quarter: 2007Q2

REPORT INFORMATION
  Report Type: 
  Country: None (occurrence: None)
  Receive Date: 20070612
  Receipt Date: 20070531
  Transmission Date: 20071010
  Serious: Yes (Hospitalization, Other)
  Sender: FDA-Public Use
  Company Number: US-PFIZER INC-2006136728

PATIENT
  Sex: Male
  Weight: 115.7 kg

DRUGS (2)
  1. CELEBREX [Suspect]
     Indication: BACK PAIN
     Dates: start: 20010514, end: 20020409
  2. BEXTRA [Suspect]
     Indication: BACK PAIN
     Dates: start: 20020409

REACTIONS (2)
  - CEREBRAL ARTERY OCCLUSION [None]
  - ISCHAEMIC STROKE [None]
